FAERS Safety Report 8564205-0 (Version None)
Quarter: 2012Q3

REPORT INFORMATION
  Report Type: 
  Country: None (occurrence: None)
  Receive Date: 20120803
  Receipt Date: 20120725
  Transmission Date: 20120928
  Serious: Yes (Other)
  Sender: FDA-Public Use
  Company Number: DK-JNJFOC-20120800656

PATIENT
  Sex: Female

DRUGS (1)
  1. REMICADE [Suspect]
     Indication: PSORIASIS
     Dosage: (LOADING INFUSIONS AT WEEK 0, 2, 6, MAINTENANCE INFUSIONS EVERY 8 WEEKS
     Route: 042

REACTIONS (1)
  - VERTIGO [None]
